FAERS Safety Report 5467736-5 (Version None)
Quarter: 2007Q3

REPORT INFORMATION
  Report Type: 
  Country: None (occurrence: None)
  Receive Date: 20070814
  Receipt Date: 20070613
  Transmission Date: 20080115
  Serious: No
  Sender: FDA-Public Use
  Company Number: 200714381US

PATIENT
  Age: 78 Year
  Sex: Male

DRUGS (17)
  1. APIDRA [Suspect]
     Indication: TYPE 2 DIABETES MELLITUS
     Dosage: 12 U
     Dates: start: 20070501
  2. OPTICLIK [Suspect]
     Indication: TYPE 2 DIABETES MELLITUS
     Dates: start: 20070501
  3. ALLOPURINOL [Concomitant]
  4. METOPROLOL [Concomitant]
  5. AMLODIPINE [Concomitant]
  6. BENAZEPRIL HYDROCHLORIDE (LOTREL /01289101/) [Concomitant]
  7. FUROSEMIDE [Concomitant]
  8. GUALIFENESIN [Concomitant]
  9. LORATADINE [Concomitant]
  10. RABEPRAZOLE SODIUM (ACIPHEX) [Concomitant]
  11. SIMVASTATIN [Concomitant]
  12. FLUTICASONE PROPIONATE, SALMETEROL XINAFOATE (ADVAIR) [Concomitant]
  13. SPIRIVA [Concomitant]
  14. BENZYL BENZOATE [Concomitant]
  15. COUMADIN [Concomitant]
  16. XOPENEX [Concomitant]
  17. VITAMINS NOS (MVI) [Concomitant]

REACTIONS (2)
  - BLOOD GLUCOSE DECREASED [None]
  - OVERDOSE [None]
